FAERS Safety Report 5859132-3 (Version None)
Quarter: 2008Q3

REPORT INFORMATION
  Report Type: 
  Country: None (occurrence: None)
  Receive Date: 20080825
  Receipt Date: 20080808
  Transmission Date: 20090109
  Serious: Yes (Hospitalization)
  Sender: FDA-Public Use
  Company Number: JPI-P-004414

PATIENT
  Age: 18 Year
  Sex: Male

DRUGS (3)
  1. XYREM [Suspect]
     Indication: DRUG USE FOR UNKNOWN INDICATION
     Dosage: 6.6 GM (3.3 GM, 2 IN 1 D), ORAL
     Route: 048
     Dates: start: 20071126
  2. MODAFINIL (MODAFINIL) [Concomitant]
  3. INSULIN (INSULIN) [Concomitant]

REACTIONS (3)
  - GRAND MAL CONVULSION [None]
  - HYPOGLYCAEMIA [None]
  - MYOCLONUS [None]
